FAERS Safety Report 18786575 (Version 1)
Quarter: 2021Q1

REPORT INFORMATION
  Report Type: Spontaneous
  Country: US (occurrence: US)
  Receive Date: 20210125
  Receipt Date: 20210125
  Transmission Date: 20210419
  Serious: Yes (Other)
  Sender: FDA-Public Use
  Company Number: None

PATIENT
  Age: 76 Year
  Sex: Male
  Weight: 59.2 kg

DRUGS (1)
  1. LEVOFLOXACIN. [Suspect]
     Active Substance: LEVOFLOXACIN
     Indication: PNEUMONIA
     Dosage: ?          OTHER FREQUENCY:EVERY OTHER DAY;?
     Route: 042
     Dates: start: 20210125, end: 20210125

REACTIONS (2)
  - Erythema [None]
  - Pain in extremity [None]

NARRATIVE: CASE EVENT DATE: 20210125
